FAERS Safety Report 9248905 (Version 1)
Quarter: 2013Q2

REPORT INFORMATION
  Report Type: Report from Study
  Country: US (occurrence: US)
  Receive Date: 20130423
  Receipt Date: 20130423
  Transmission Date: 20140414
  Serious: Yes (Other)
  Sender: FDA-Public Use
  Company Number: US-ROCHE-1216335

PATIENT
  Age: 71 Year
  Sex: Male
  Weight: 97 kg

DRUGS (2)
  1. BEVACIZUMAB [Suspect]
     Indication: COLORECTAL CANCER METASTATIC
     Dosage: START DATE OF COURSE ASSOCIAETED WITH AE:06/MAR/2013, NUMBER OF COURSE TO DATE:12, TOTAL DOSE ADMINI
     Route: 065
     Dates: start: 20121003
  2. FLUOROURACIL [Suspect]
     Indication: COLORECTAL CANCER METASTATIC
     Dosage: START DATE OF COURSE ASSOCIATED WITH AE:06/MAR/2013, NUMBER OF COURSES TO DATE:12, TOTAL DOSE ADMINI
     Route: 065
     Dates: start: 20121003

REACTIONS (1)
  - Blood bilirubin increased [Recovering/Resolving]
